FAERS Safety Report 17323578 (Version 3)
Quarter: 2022Q3

REPORT INFORMATION
  Report Type: Other
  Country: US (occurrence: None)
  Receive Date: 20200127
  Receipt Date: 20220813
  Transmission Date: 20221027
  Serious: Yes (Disabling, Other)
  Sender: FDA-Public Use
  Company Number: US-ROCHE-2528378

PATIENT
  Sex: Female

DRUGS (4)
  1. OCREVUS [Suspect]
     Active Substance: OCRELIZUMAB
     Indication: Relapsing multiple sclerosis
     Route: 065
     Dates: start: 20190810
  2. OCREVUS [Suspect]
     Active Substance: OCRELIZUMAB
     Dosage: DATE OF TREATMENT: 16/AUG/2018, 14/FEB/2019, 15/AUG/2019
     Route: 065
     Dates: start: 20180216
  3. OCREVUS [Suspect]
     Active Substance: OCRELIZUMAB
     Route: 065
     Dates: end: 2020
  4. OCREVUS [Suspect]
     Active Substance: OCRELIZUMAB
     Route: 065
     Dates: start: 202202

REACTIONS (11)
  - Pneumonia [Recovered/Resolved]
  - Disability [Unknown]
  - Breast neoplasm [Unknown]
  - Illness [Not Recovered/Not Resolved]
  - COVID-19 [Recovered/Resolved]
  - Fall [Unknown]
  - Arthralgia [Not Recovered/Not Resolved]
  - Balance disorder [Not Recovered/Not Resolved]
  - Candida infection [Recovered/Resolved]
  - Depression [Recovered/Resolved]
  - Immunoglobulins decreased [Unknown]

NARRATIVE: CASE EVENT DATE: 20190101
